FAERS Safety Report 8287628-6 (Version None)
Quarter: 2012Q2

REPORT INFORMATION
  Report Type: 
  Country: None (occurrence: None)
  Receive Date: 20120416
  Receipt Date: 20120410
  Transmission Date: 20120825
  Serious: Yes (Death, Hospitalization, Other)
  Sender: FDA-Public Use
  Company Number: PHEH2006US06792

PATIENT
  Sex: Female
  Weight: 65.306 kg

DRUGS (69)
  1. AREDIA [Suspect]
     Indication: METASTASES TO BONE
     Dosage: 90 MG, QMO
     Route: 042
     Dates: start: 20001003, end: 20020219
  2. FOSAMAX [Concomitant]
     Dosage: 10 MG, QW
     Dates: start: 20020122, end: 20040219
  3. ATARAX [Concomitant]
  4. PERCOCET [Concomitant]
  5. VESICARE [Concomitant]
  6. ALPRAZOLAM [Concomitant]
  7. GEMCITABINE [Concomitant]
  8. ACEON [Concomitant]
  9. RELAFEN [Concomitant]
  10. ULTRAM [Concomitant]
  11. CELEBREX [Concomitant]
  12. LOVENOX [Concomitant]
  13. OXYCODONE HCL [Concomitant]
  14. FLEXERIL [Concomitant]
  15. ZOMETA [Suspect]
     Indication: METASTASES TO BONE
     Dosage: 4 MG, QMO
     Dates: start: 20020319, end: 20031201
  16. ATIVAN [Concomitant]
     Indication: ANXIETY
     Dosage: 1 MG BID PRN
     Route: 048
     Dates: start: 20000928
  17. NOLVADEX [Concomitant]
  18. LIDOCAINE HCL VISCOUS [Concomitant]
  19. VITAMIN D [Concomitant]
  20. MEDROL [Concomitant]
  21. NAPROSYN [Concomitant]
  22. TEGRETOL [Concomitant]
  23. PREDNISONE TAB [Concomitant]
  24. TAMOXIFEN CITRATE [Concomitant]
     Indication: BREAST CANCER
     Dosage: 10 MG, BID
     Route: 048
     Dates: start: 19981031, end: 20030501
  25. VIOXX [Concomitant]
     Indication: BONE PAIN
     Dosage: 25 MG, QD
     Dates: start: 20010220, end: 20040908
  26. PROMETHAZINE HCL [Concomitant]
  27. ZYRTEC [Concomitant]
  28. CALCITONIN SALMON [Concomitant]
  29. METOCLOPRAMIDE [Concomitant]
  30. CYCLOBENZAPRINE HYDROCHLORIDE [Concomitant]
  31. METHADON HCL TAB [Concomitant]
  32. AVELOX [Concomitant]
  33. CODEINE SULFATE [Concomitant]
  34. ELAVIL [Concomitant]
  35. ZOMETA [Suspect]
     Indication: BREAST CANCER METASTATIC
  36. GLUCOSAMINE W/CHONDROITIN [Concomitant]
     Dosage: UNK, QD
     Dates: start: 20020122, end: 20030121
  37. REGLAN [Concomitant]
     Indication: GASTROOESOPHAGEAL REFLUX DISEASE
     Dosage: 10MG WITH MEALS
     Route: 048
  38. PHENERGAN [Concomitant]
  39. FAMVIR                                  /NET/ [Concomitant]
  40. MOBIC [Concomitant]
  41. PAMELOR [Concomitant]
  42. SKELAXIN [Concomitant]
  43. ZOLOFT [Concomitant]
  44. AROMASIN [Concomitant]
  45. CYPROHEPTADINE HYDROCHLORIDE [Concomitant]
  46. ACETAMINOPHEN AND HYDROCODONE BITARTRATE [Concomitant]
  47. TORADOL [Concomitant]
  48. PENICILLIN VK [Concomitant]
  49. SPORANOX [Concomitant]
  50. DEMEROL [Concomitant]
  51. LODINE [Concomitant]
  52. SOMA [Concomitant]
  53. ARIMIDEX [Concomitant]
     Dosage: 1 MG, QD
     Dates: start: 20031001
  54. CALCIUM CARBONATE [Concomitant]
     Dosage: 400 MG, QID
     Dates: start: 20000929, end: 20030121
  55. DARVOCET-N 50 [Concomitant]
     Dosage: UNK, PRN
  56. BETAMETHASONE VALERATE [Concomitant]
  57. LORAZEPAM [Concomitant]
  58. ELIDEL [Concomitant]
  59. CHLORHEXIDINE GLUCONATE [Concomitant]
  60. KLONOPIN [Concomitant]
  61. ROBAXIN [Concomitant]
  62. NEXIUM [Concomitant]
     Indication: GASTROOESOPHAGEAL REFLUX DISEASE
     Dosage: QD PRN
     Dates: start: 20021029, end: 20040908
  63. BACTRIM [Concomitant]
  64. PROCHLORPERAZINE [Concomitant]
  65. HYDROXYZINE [Concomitant]
  66. PAXIL [Concomitant]
  67. AMBIEN [Concomitant]
  68. DESYREL [Concomitant]
  69. NEURONTIN [Concomitant]

REACTIONS (84)
  - OEDEMA PERIPHERAL [None]
  - PAIN [None]
  - ANXIETY [None]
  - ABSCESS JAW [None]
  - IMPAIRED HEALING [None]
  - TOOTH DEPOSIT [None]
  - PROCEDURAL PAIN [None]
  - CERVICAL SPINAL STENOSIS [None]
  - METASTASES TO SPINE [None]
  - SKIN CANCER [None]
  - RENAL FAILURE [None]
  - HAEMATURIA [None]
  - PAIN IN EXTREMITY [None]
  - ASTHENIA [None]
  - TOOTH INFECTION [None]
  - PAPILLOMA [None]
  - GINGIVAL SWELLING [None]
  - PATHOLOGICAL FRACTURE [None]
  - BACK PAIN [None]
  - DYSPHAGIA [None]
  - ANAEMIA [None]
  - BILE DUCT STONE [None]
  - ACTINOMYCOSIS [None]
  - NEOPLASM MALIGNANT [None]
  - DECUBITUS ULCER [None]
  - NEPHROPATHY [None]
  - SPINAL OSTEOARTHRITIS [None]
  - DEATH [None]
  - INFLAMMATION [None]
  - TOOTH DISORDER [None]
  - GINGIVAL INFECTION [None]
  - LACUNAR INFARCTION [None]
  - COMPRESSION FRACTURE [None]
  - HYPERTONIC BLADDER [None]
  - DERMATITIS [None]
  - COMA [None]
  - CHRONIC OBSTRUCTIVE PULMONARY DISEASE [None]
  - DEFORMITY [None]
  - ORAL DISCOMFORT [None]
  - PURULENT DISCHARGE [None]
  - FACE OEDEMA [None]
  - DYSGEUSIA [None]
  - DIAPHRAGMATIC HERNIA [None]
  - URINARY TRACT INFECTION [None]
  - MYOFASCIAL PAIN SYNDROME [None]
  - DYSPNOEA [None]
  - ANHEDONIA [None]
  - OSTEOMYELITIS [None]
  - PAIN IN JAW [None]
  - DENTAL CARIES [None]
  - BONE DISORDER [None]
  - TOOTH LOSS [None]
  - WEIGHT DECREASED [None]
  - KYPHOSIS [None]
  - INTERVERTEBRAL DISC PROTRUSION [None]
  - NEOPLASM PROGRESSION [None]
  - RASH [None]
  - COGNITIVE DISORDER [None]
  - EMOTIONAL DISTRESS [None]
  - TOOTH FRACTURE [None]
  - PRIMARY SEQUESTRUM [None]
  - HYPERPLASIA [None]
  - METASTASES TO BONE [None]
  - AORTIC CALCIFICATION [None]
  - CHOLECYSTITIS [None]
  - DIVERTICULUM INTESTINAL [None]
  - PLEURAL EFFUSION [None]
  - ATELECTASIS [None]
  - HERPES ZOSTER [None]
  - BASAL CELL CARCINOMA [None]
  - COLON CANCER [None]
  - URTICARIA [None]
  - BONE PAIN [None]
  - ASPIRATION [None]
  - HYPOKALAEMIA [None]
  - OSTEONECROSIS OF JAW [None]
  - ORAL CAVITY FISTULA [None]
  - TOOTHACHE [None]
  - HYPOAESTHESIA [None]
  - MALIGNANT PLEURAL EFFUSION [None]
  - TACHYCARDIA [None]
  - GAIT DISTURBANCE [None]
  - OSTEOARTHRITIS [None]
  - SPEECH DISORDER [None]
